FAERS Safety Report 19962679 (Version 1)
Quarter: 2021Q4

REPORT INFORMATION
  Report Type: Spontaneous
  Country: US (occurrence: US)
  Receive Date: 20211015
  Receipt Date: 20211015
  Transmission Date: 20220303
  Serious: No
  Sender: FDA-Public Use
  Company Number: None

PATIENT
  Age: 71 Year
  Sex: Male
  Weight: 90.45 kg

DRUGS (8)
  1. BAMLANIVIMAB\ETESEVIMAB [Suspect]
     Active Substance: BAMLANIVIMAB\ETESEVIMAB
     Indication: COVID-19
     Dosage: ?          OTHER FREQUENCY:ONE-TIME INFUSION;
     Route: 042
  2. ATORVASTATIN [Concomitant]
     Active Substance: ATORVASTATIN
  3. LOSARTAN [Concomitant]
     Active Substance: LOSARTAN
  4. AMLODIPINE [Concomitant]
     Active Substance: AMLODIPINE BESYLATE
  5. CHLORTHALIDONE [Concomitant]
     Active Substance: CHLORTHALIDONE
  6. ASPIRIN [Concomitant]
     Active Substance: ASPIRIN
  7. CENTRUM SILVER 50+ FOR MEN MULTIVITAMIN [Concomitant]
  8. TYELNOL ARTHRITIS [Concomitant]

REACTIONS (2)
  - Dry eye [None]
  - Eye pain [None]

NARRATIVE: CASE EVENT DATE: 20211015
